FAERS Safety Report 8499557-3 (Version None)
Quarter: 2012Q3

REPORT INFORMATION
  Report Type: 
  Country: None (occurrence: None)
  Receive Date: 20120710
  Receipt Date: 20120628
  Transmission Date: 20120928
  Serious: Yes (Hospitalization)
  Sender: FDA-Public Use
  Company Number: BR-BRISTOL-MYERS SQUIBB COMPANY-16734923

PATIENT
  Age: 72 Year
  Sex: Male
  Weight: 117 kg

DRUGS (8)
  1. SOMALGIN [Concomitant]
  2. LATANOPROST [Concomitant]
  3. PROPAFENONE HCL [Concomitant]
  4. ONGLYZA [Suspect]
     Indication: DIABETES MELLITUS
     Route: 048
  5. LOSARTAN POTASSIUM [Concomitant]
  6. PAMELOR [Concomitant]
  7. CHLORPROMAZINE HCL [Concomitant]
  8. CYCLOBENZAPRINE HCL [Concomitant]

REACTIONS (2)
  - MEDICATION ERROR [None]
  - SPINAL LAMINECTOMY [None]
